FAERS Safety Report 6211600-0 (Version None)
Quarter: 2009Q2

REPORT INFORMATION
  Report Type: 
  Country: None (occurrence: None)
  Receive Date: 20090602
  Receipt Date: 20090526
  Transmission Date: 20091009
  Serious: Yes (Other)
  Sender: FDA-Public Use
  Company Number: CA-ASTRAZENECA-2009UW13626

PATIENT
  Age: 30 Year
  Sex: Female

DRUGS (1)
  1. ZOLADEX [Suspect]
     Route: 058

REACTIONS (4)
  - DYSPNOEA [None]
  - FOLLICULITIS [None]
  - SKIN DISORDER [None]
  - WHEEZING [None]
